FAERS Safety Report 6417582-0 (Version None)
Quarter: 2009Q4

REPORT INFORMATION
  Report Type: 
  Country: None (occurrence: None)
  Receive Date: 20091028
  Receipt Date: 20091014
  Transmission Date: 20100525
  Serious: Yes (Other)
  Sender: FDA-Public Use
  Company Number: JP-ROCHE-663360

PATIENT
  Age: 55 Year
  Sex: Female

DRUGS (2)
  1. VESANOID [Suspect]
     Indication: ACUTE MYELOID LEUKAEMIA
     Route: 048
     Dates: start: 19930101
  2. ENOCITABINE [Suspect]
     Indication: ACUTE MYELOID LEUKAEMIA
     Dosage: ROUTE: INJECTABLE (NOT OTHERWISE SPECIFIED)
     Route: 050
     Dates: start: 20010101

REACTIONS (1)
  - ACUTE MYELOID LEUKAEMIA [None]
